FAERS Safety Report 6290104-3 (Version None)
Quarter: 2009Q3

REPORT INFORMATION
  Report Type: 
  Country: None (occurrence: None)
  Receive Date: 20090730
  Receipt Date: 20081120
  Transmission Date: 20100115
  Serious: No
  Sender: FDA-Public Use
  Company Number: US-BRISTOL-MYERS SQUIBB COMPANY-14413785

PATIENT
  Age: 82 Year
  Sex: Male

DRUGS (2)
  1. COUMADIN [Suspect]
     Route: 065
  2. IPRATROPIUM BROMIDE AND ALBUTEROL SULFATE [Suspect]
     Dosage: 1 DOSAGE FORM= 0.017% IPRATROPIUM BROMIDE, 0.083% ALBUTEROL SULFATE.
     Route: 055

REACTIONS (2)
  - SKIN LACERATION [None]
  - WOUND HAEMORRHAGE [None]
